FAERS Safety Report 5206245-5 (Version None)
Quarter: 2007Q1

REPORT INFORMATION
  Report Type: 
  Country: None (occurrence: None)
  Receive Date: 20070111
  Receipt Date: 20061228
  Transmission Date: 20070707
  Serious: Yes (Other)
  Sender: FDA-Public Use
  Company Number: US-SHR-US-2006-032100

PATIENT
  Age: 55 Year
  Sex: Female

DRUGS (8)
  1. BETASERON [Suspect]
     Dosage: 8 MIU, EVERY 2D
     Route: 058
     Dates: start: 20060620
  2. ESTRADIOL [Concomitant]
  3. SYNTHROID [Concomitant]
  4. ZOCOR [Concomitant]
  5. NAPROXEN [Concomitant]
  6. ZYRTEC [Concomitant]
  7. WELLBUTRIN [Concomitant]
  8. PAROXETINE HCL [Concomitant]
     Dosage: UNK, UNK

REACTIONS (2)
  - EXOSTOSIS [None]
  - TENDONITIS [None]
